FAERS Safety Report 7609569-7 (Version None)
Quarter: 2011Q3

REPORT INFORMATION
  Report Type: 
  Country: None (occurrence: None)
  Receive Date: 20110714
  Receipt Date: 20110706
  Transmission Date: 20111222
  Serious: Yes (Hospitalization)
  Sender: FDA-Public Use
  Company Number: GB-JNJFOC-20110703401

PATIENT
  Age: 74 Year
  Sex: Female

DRUGS (13)
  1. HYPROMELLOSE [Concomitant]
  2. GOLIMUMAB [Suspect]
     Route: 058
     Dates: start: 20110625
  3. METFORMIN HCL [Concomitant]
  4. METHOTREXATE [Concomitant]
     Dosage: 9 TIMES 2.5MG
  5. GOLIMUMAB [Suspect]
     Indication: RHEUMATOID ARTHRITIS
     Route: 058
     Dates: start: 20101124
  6. ACETAMINOPHEN AND CODEINE PHOSPHATE [Concomitant]
     Dosage: 30/500, AS NECESSARY
  7. LEVOTHYROXINE [Concomitant]
  8. FOLIC ACID [Concomitant]
  9. ADCAL D3 [Concomitant]
  10. MOVICOL SACHET [Concomitant]
  11. WARFARIN SODIUM [Concomitant]
     Dosage: ^PER INR^
  12. ALENDRONIC ACID [Concomitant]
  13. PREDNISOLONE [Concomitant]
     Dosage: AS DIRECTED

REACTIONS (3)
  - INFECTION [None]
  - SYNCOPE [None]
  - VOMITING [None]
